FAERS Safety Report 6974537-5 (Version None)
Quarter: 2010Q3

REPORT INFORMATION
  Report Type: 
  Country: None (occurrence: None)
  Receive Date: 20100909
  Receipt Date: 20080922
  Transmission Date: 20110219
  Serious: No
  Sender: FDA-Public Use
  Company Number: US-WYE-H06100808

PATIENT
  Sex: Male

DRUGS (3)
  1. PROTONIX [Suspect]
     Indication: GASTROOESOPHAGEAL REFLUX DISEASE
     Route: 048
     Dates: end: 20080701
  2. PROTONIX [Suspect]
     Route: 048
     Dates: start: 20080701
  3. MIRALAX [Concomitant]

REACTIONS (3)
  - DRUG TOLERANCE [None]
  - DYSPEPSIA [None]
  - OROPHARYNGEAL PAIN [None]
